FAERS Safety Report 6148401-8 (Version None)
Quarter: 2009Q2

REPORT INFORMATION
  Report Type: 
  Country: None (occurrence: None)
  Receive Date: 20090408
  Receipt Date: 20090331
  Transmission Date: 20091009
  Serious: Yes (Death)
  Sender: FDA-Public Use
  Company Number: US-GENENTECH-280280

PATIENT
  Sex: Male
  Weight: 112.3 kg

DRUGS (4)
  1. METHOTREXATE [Suspect]
     Dosage: UNK MG, DAYS 1+15
     Route: 042
  2. BLINDED PLACEBO [Suspect]
     Dosage: UNK MG, DAYS 1+15
     Route: 042
  3. BLINDED RITUXIMAB [Suspect]
     Dosage: UNK MG, DAYS 1+15
     Route: 042
  4. RITUXAN [Suspect]
     Indication: RHEUMATOID ARTHRITIS
     Dosage: 1000 MG, DAYS 1+15
     Route: 042
     Dates: start: 20061016

REACTIONS (1)
  - DEATH [None]
